FAERS Safety Report 26047044 (Version 1)
Quarter: 2025Q4

REPORT INFORMATION
  Report Type: Spontaneous
  Country: CN (occurrence: None)
  Receive Date: 20251114
  Receipt Date: 20251114
  Transmission Date: 20260118
  Serious: Yes (Hospitalization, Other)
  Sender: AMERICAN REGENT
  Company Number: CN-AMERICAN REGENT INC-2025004083

PATIENT
  Age: 68 Year
  Sex: Female
  Weight: 70 kg

DRUGS (2)
  1. VENOFER [Suspect]
     Active Substance: IRON SUCROSE
     Indication: Mineral supplementation
     Dosage: 100 MILLIGRAM, QD
     Route: 041
     Dates: start: 20251021, end: 20251022
  2. SODIUM CHLORIDE [Concomitant]
     Active Substance: SODIUM CHLORIDE
     Indication: Product used for unknown indication
     Dosage: UNK
     Route: 065

REACTIONS (3)
  - Drug eruption [Recovering/Resolving]
  - Sleep disorder [Unknown]
  - Dermatitis allergic [Unknown]

NARRATIVE: CASE EVENT DATE: 20251001
